FAERS Safety Report 24832171 (Version 1)
Quarter: 2025Q1

REPORT INFORMATION
  Report Type: Spontaneous
  Country: CN (occurrence: CN)
  Receive Date: 20250110
  Receipt Date: 20250110
  Transmission Date: 20250408
  Serious: Yes (Life-Threatening, Hospitalization, Other)
  Sender: ALEXION PHARMACEUTICALS
  Company Number: CN-ASTRAZENECA-202501CHN005755CN

PATIENT
  Age: 49 Year
  Weight: 50 kg

DRUGS (8)
  1. FULVESTRANT [Suspect]
     Active Substance: FULVESTRANT
     Indication: Metastases to bone
  2. FULVESTRANT [Suspect]
     Active Substance: FULVESTRANT
     Route: 030
  3. FULVESTRANT [Suspect]
     Active Substance: FULVESTRANT
  4. FULVESTRANT [Suspect]
     Active Substance: FULVESTRANT
     Route: 030
  5. GOSERELIN [Suspect]
     Active Substance: GOSERELIN
     Indication: Metastases to bone
  6. GOSERELIN [Suspect]
     Active Substance: GOSERELIN
  7. GOSERELIN [Suspect]
     Active Substance: GOSERELIN
  8. GOSERELIN [Suspect]
     Active Substance: GOSERELIN

REACTIONS (1)
  - Myelosuppression [Recovering/Resolving]
